FAERS Safety Report 5629645-8 (Version None)
Quarter: 2008Q1

REPORT INFORMATION
  Report Type: 
  Country: None (occurrence: None)
  Receive Date: 20080218
  Receipt Date: 20080211
  Transmission Date: 20080703
  Serious: Yes (Other)
  Sender: FDA-Public Use
  Company Number: A0704364A

PATIENT
  Age: 59 Year
  Sex: Female

DRUGS (3)
  1. TYKERB [Suspect]
     Indication: BREAST CANCER
     Dosage: 5TAB PER DAY
     Route: 048
     Dates: start: 20071018
  2. GEMZAR [Concomitant]
     Indication: BREAST CANCER
     Dosage: 1200MG SEE DOSAGE TEXT
     Route: 042
     Dates: start: 20070801, end: 20080107
  3. TAXOTERE [Concomitant]
     Indication: BREAST CANCER
     Dosage: 30MG SEE DOSAGE TEXT
     Route: 042
     Dates: start: 20070801, end: 20080107

REACTIONS (4)
  - BREAST CANCER [None]
  - DIARRHOEA [None]
  - MEDICATION RESIDUE [None]
  - PHARMACEUTICAL PRODUCT COMPLAINT [None]
